FAERS Safety Report 26164749 (Version 1)
Quarter: 2025Q4

REPORT INFORMATION
  Report Type: Report from Study
  Country: US (occurrence: None)
  Receive Date: 20251216
  Receipt Date: 20251216
  Transmission Date: 20260118
  Serious: No
  Sender: IONIS PHARMACEUTICALS
  Company Number: US-IONIS PHARMACEUTICALS, INC.-2025IS004050

PATIENT
  Age: 65 Year

DRUGS (7)
  1. TRYNGOLZA [Suspect]
     Active Substance: OLEZARSEN SODIUM
     Indication: Familial hypertriglyceridaemia
     Dosage: 80 MILLIGRAM, Q1M
  2. ATORVASTATIN [Concomitant]
     Active Substance: ATORVASTATIN
  3. FENOFIBRATE [Concomitant]
     Active Substance: FENOFIBRATE
  4. LISINOPRIL [Concomitant]
     Active Substance: LISINOPRIL
  5. TADALAFIL [Concomitant]
     Active Substance: TADALAFIL
  6. XIGDUO XR [Concomitant]
     Active Substance: DAPAGLIFLOZIN PROPANEDIOL\METFORMIN HYDROCHLORIDE
  7. VASCEPA [Concomitant]
     Active Substance: ICOSAPENT ETHYL

REACTIONS (3)
  - Injection site nodule [Recovered/Resolved]
  - Injection site irritation [Recovered/Resolved]
  - Injection site discolouration [Not Recovered/Not Resolved]
